FAERS Safety Report 13351895 (Version 1)
Quarter: 2017Q1

REPORT INFORMATION
  Report Type: Spontaneous
  Country: US (occurrence: US)
  Receive Date: 20170320
  Receipt Date: 20170320
  Transmission Date: 20170429
  Serious: No
  Sender: FDA-Public Use
  Company Number: US-SA-2016SA174140

PATIENT
  Sex: Female

DRUGS (2)
  1. NASACORT ALLERGY 24HR [Suspect]
     Active Substance: TRIAMCINOLONE ACETONIDE
     Dosage: FORM - NASAL SPRAY
     Route: 045
     Dates: start: 20160913
  2. NASACORT ALLERGY 24HR [Suspect]
     Active Substance: TRIAMCINOLONE ACETONIDE
     Dosage: FORM - NASAL SPRAY
     Route: 045
     Dates: start: 20160914

REACTIONS (2)
  - Extra dose administered [Unknown]
  - Exposure during breast feeding [Unknown]
